FAERS Safety Report 5322032-1 (Version None)
Quarter: 2007Q2

REPORT INFORMATION
  Report Type: 
  Country: None (occurrence: None)
  Receive Date: 20070508
  Receipt Date: 20070508
  Transmission Date: 20071010
  Serious: No
  Sender: FDA-Public Use
  Company Number: None

PATIENT
  Age: 34 Year
  Sex: Female
  Weight: 77.11 kg

DRUGS (1)
  1. MAXIPIME [Suspect]
     Indication: ARTHRITIS BACTERIAL
     Dosage: 1GM  Q12H   IV
     Route: 042
     Dates: start: 20070319, end: 20070419

REACTIONS (3)
  - BURNING SENSATION [None]
  - INFUSION RELATED REACTION [None]
  - RASH [None]
